FAERS Safety Report 15450855 (Version 1)
Quarter: 2018Q3

REPORT INFORMATION
  Report Type: Spontaneous
  Country: US (occurrence: US)
  Receive Date: 20180926
  Receipt Date: 20180926
  Transmission Date: 20181010
  Serious: Yes (Hospitalization)
  Sender: FDA-Public Use
  Company Number: None

PATIENT
  Age: 70 Year
  Sex: Female
  Weight: 54.66 kg

DRUGS (1)
  1. LENALIDOMIDE (CC?5013) [Suspect]
     Active Substance: LENALIDOMIDE
     Dates: end: 20180916

REACTIONS (11)
  - Pneumonia [None]
  - Chills [None]
  - Bacterial test positive [None]
  - Malaise [None]
  - Pyuria [None]
  - Hypokalaemia [None]
  - Fatigue [None]
  - Urinary tract infection [None]
  - Asthenia [None]
  - Disease progression [None]
  - White blood cells urine positive [None]

NARRATIVE: CASE EVENT DATE: 20180915
